FAERS Safety Report 14196678 (Version 1)
Quarter: 2017Q4

REPORT INFORMATION
  Report Type: Spontaneous
  Country: US (occurrence: US)
  Receive Date: 20171116
  Receipt Date: 20171116
  Transmission Date: 20180321
  Serious: No
  Sender: FDA-Public Use
  Company Number: US-DUSA PHARMACEUTICALS, INC.-2034393

PATIENT
  Age: 73 Year
  Sex: Male

DRUGS (5)
  1. BUMINATE [Concomitant]
     Active Substance: ALBUMIN HUMAN
     Route: 047
     Dates: start: 20170420
  2. LEVULAN KERASTICK [Suspect]
     Active Substance: AMINOLEVULINIC ACID HYDROCHLORIDE
     Indication: ACTINIC KERATOSIS
     Route: 061
     Dates: start: 20170222, end: 20170222
  3. GENTEAL TEARS (MILD) [Concomitant]
     Active Substance: DEXTRAN 70\HYPROMELLOSE 2910 (4000 MPA.S)
     Route: 047
     Dates: start: 20170322
  4. DOXYCYCLINE HYDRATE [Concomitant]
     Active Substance: DOXYCYCLINE HYCLATE
     Dates: start: 20170420
  5. OASIS TEARS [Concomitant]
     Active Substance: GLYCERIN
     Route: 047
     Dates: start: 20170308

REACTIONS (4)
  - Keratitis [Not Recovered/Not Resolved]
  - Photophobia [Not Recovered/Not Resolved]
  - Eye irritation [Not Recovered/Not Resolved]
  - Hypersensitivity [Not Recovered/Not Resolved]
